FAERS Safety Report 21761409 (Version 2)
Quarter: 2023Q2

REPORT INFORMATION
  Report Type: Spontaneous
  Country: PL (occurrence: PL)
  Receive Date: 20221221
  Receipt Date: 20230509
  Transmission Date: 20230722
  Serious: Yes (Other)
  Sender: FDA-Public Use
  Company Number: PL-ROCHE-3230811

PATIENT
  Age: 60 Year
  Sex: Female

DRUGS (4)
  1. BEVACIZUMAB [Suspect]
     Active Substance: BEVACIZUMAB
     Indication: Retinal neovascularisation
     Route: 065
  2. AFLIBERCEPT [Suspect]
     Active Substance: AFLIBERCEPT
     Indication: Retinal neovascularisation
     Route: 065
  3. BROLUCIZUMAB [Suspect]
     Active Substance: BROLUCIZUMAB
     Indication: Retinal neovascularisation
     Route: 065
  4. FARICIMAB [Suspect]
     Active Substance: FARICIMAB
     Indication: Retinal neovascularisation
     Route: 065
     Dates: start: 20221123

REACTIONS (4)
  - Retinal oedema [Unknown]
  - Subretinal hyperreflective exudation [Unknown]
  - Retinal disorder [Unknown]
  - Off label use [Unknown]
